FAERS Safety Report 6181201-1 (Version None)
Quarter: 2009Q2

REPORT INFORMATION
  Report Type: 
  Country: None (occurrence: None)
  Receive Date: 20090506
  Receipt Date: 20090428
  Transmission Date: 20091009
  Serious: No
  Sender: FDA-Public Use
  Company Number: US-ELI_LILLY_AND_COMPANY-US200903000739

PATIENT
  Sex: Male

DRUGS (1)
  1. CIALIS [Suspect]
     Dosage: 20 MG, UNK
     Route: 065

REACTIONS (4)
  - ABNORMAL SENSATION IN EYE [None]
  - HEADACHE [None]
  - PHOTOPSIA [None]
  - VISUAL IMPAIRMENT [None]
